FAERS Safety Report 24317508 (Version 1)
Quarter: 2024Q3

REPORT INFORMATION
  Report Type: Spontaneous
  Country: CN (occurrence: CN)
  Receive Date: 20240913
  Receipt Date: 20240913
  Transmission Date: 20241017
  Serious: Yes (Life-Threatening, Hospitalization)
  Sender: PFIZER
  Company Number: CN-PFIZER INC-PV202400120039

PATIENT
  Age: 4 Year
  Sex: Female
  Weight: 5.8 kg

DRUGS (4)
  1. METHOTREXATE SODIUM [Suspect]
     Active Substance: METHOTREXATE SODIUM
     Indication: Acute lymphocytic leukaemia
     Dosage: 2.3 G, 1X/DAY
     Route: 041
     Dates: start: 20240901, end: 20240902
  2. MERCAPTOPURINE [Suspect]
     Active Substance: MERCAPTOPURINE
     Indication: Acute lymphocytic leukaemia
     Dosage: 16 MG, 1X/DAY
     Route: 048
     Dates: start: 20240825, end: 20240901
  3. MERCAPTOPURINE [Suspect]
     Active Substance: MERCAPTOPURINE
     Dosage: 16 MG, 1X/DAY
     Route: 048
     Dates: start: 20240903, end: 20240908
  4. DEXTROSE [Concomitant]
     Active Substance: DEXTROSE\DEXTROSE MONOHYDRATE
     Indication: Acute lymphocytic leukaemia
     Dosage: 37 ML, 1X/DAY
     Route: 041
     Dates: start: 20240901, end: 20240902

REACTIONS (1)
  - Liver injury [Recovering/Resolving]

NARRATIVE: CASE EVENT DATE: 20240904
